FAERS Safety Report 7920532-9 (Version None)
Quarter: 2011Q4

REPORT INFORMATION
  Report Type: 
  Country: None (occurrence: None)
  Receive Date: 20111117
  Receipt Date: 20111111
  Transmission Date: 20120403
  Serious: Yes (Other)
  Sender: FDA-Public Use
  Company Number: PHHY2011BR099774

PATIENT
  Age: 79 Year
  Sex: Female

DRUGS (1)
  1. EXELON [Suspect]
     Dosage: UNK UKN, UNK

REACTIONS (2)
  - DEMENTIA [None]
  - CEREBRAL DISORDER [None]
